FAERS Safety Report 23616900 (Version 1)
Quarter: 2024Q1

REPORT INFORMATION
  Report Type: Spontaneous
  Country: US (occurrence: US)
  Receive Date: 20240311
  Receipt Date: 20240311
  Transmission Date: 20240409
  Serious: Yes (Death, Other)
  Sender: FDA-Public Use
  Company Number: US-INCYTE CORPORATION-2024IN002618

PATIENT

DRUGS (1)
  1. JAKAFI [Suspect]
     Active Substance: RUXOLITINIB
     Dosage: 5 MILLIGRAM, 1 TABLET ON DIALYSIS DAYS ONLY, ON TUESDAY, THURSDAY, AND SATURDAY
     Route: 048
     Dates: start: 202101

REACTIONS (2)
  - Death [Fatal]
  - Renal disorder [Unknown]

NARRATIVE: CASE EVENT DATE: 20240220
